FAERS Safety Report 4332708-0 (Version None)
Quarter: 2004Q1

REPORT INFORMATION
  Report Type: 
  Country: None (occurrence: None)
  Receive Date: 20040330
  Receipt Date: 20040316
  Transmission Date: 20041129
  Serious: Yes (Death, Life-Threatening, Hospitalization)
  Sender: FDA-Public Use
  Company Number: NSADSS2002027244

PATIENT
  Age: 82 Year
  Sex: Female
  Weight: 72.5755 kg

DRUGS (15)
  1. REMICADE [Suspect]
     Indication: RHEUMATOID ARTHRITIS
     Dosage: , 1 IN 1 AS NECESSARY, INTRAVENOUS DRIP (
     Route: 041
     Dates: start: 20010822, end: 20010822
  2. REMICADE [Suspect]
     Dosage: , 1 IN 1 AS NECESSARY; INTRAVENOUS DRIP
     Route: 041
     Dates: start: 20011001, end: 20011001
  3. REMICADE [Suspect]
     Dosage: 300 MG, 1 IN 1 AS NECESSARY; INTRAVENOUS DRIP
     Route: 041
     Dates: start: 20020326, end: 20020326
  4. REMICADE [Suspect]
     Dosage: 300 MG, 1 IN 1 AS NECESSARY; INTRAVENOUS DRIP
     Route: 041
     Dates: start: 20020507, end: 20020507
  5. REMICADE [Suspect]
     Dosage: 300 MG, 1 IN 1 AS NECESSARY; INTRAVENOUS DRIP
     Route: 041
     Dates: start: 20020618, end: 20020618
  6. REMICADE [Suspect]
     Dosage: 4, 1 IN 1 AS NECESSARY, INTRAVENOUS DRIP
     Route: 041
  7. VIOXX [Concomitant]
  8. PROTONIX [Concomitant]
  9. ASPIRIN [Concomitant]
  10. PREDNISONE [Concomitant]
  11. SYNTHROID [Concomitant]
  12. ALPRAZOLAM [Concomitant]
  13. DETROL ECASA (TOLTERODINE L-TARTRATE) [Concomitant]
  14. MICARDIS [Concomitant]
  15. PREMARIN [Concomitant]

REACTIONS (10)
  - ALVEOLITIS [None]
  - CLOSTRIDIUM COLITIS [None]
  - DEHYDRATION [None]
  - HYPOXIA [None]
  - ILEUS [None]
  - INFLAMMATION [None]
  - INTESTINAL PERFORATION [None]
  - LUNG CONSOLIDATION [None]
  - PLEURAL EFFUSION [None]
  - SEPTIC SHOCK [None]
